FAERS Safety Report 9221036 (Version 1)
Quarter: 2013Q2

REPORT INFORMATION
  Report Type: Report from Study
  Country: FR (occurrence: FR)
  Receive Date: 20130409
  Receipt Date: 20130409
  Transmission Date: 20140414
  Serious: Yes (Other)
  Sender: FDA-Public Use
  Company Number: FR-GILEAD-2013-0072896

PATIENT
  Age: 48 Year
  Sex: Male

DRUGS (3)
  1. EMTRICITABINE/TENOFOVIR DISOPROXIL FUMARATE [Suspect]
     Indication: HIV INFECTION
     Dosage: 1 DF, QD
     Route: 048
     Dates: start: 20111031, end: 20130111
  2. REYATAZ [Suspect]
     Indication: HIV INFECTION
     Dosage: 1 DF, QD
     Route: 048
     Dates: start: 20111031, end: 20130111
  3. NORVIR [Concomitant]
     Dosage: 1 DF, QD
     Route: 048
     Dates: start: 20111031, end: 20130111

REACTIONS (2)
  - Nephrolithiasis [Recovered/Resolved]
  - Renal failure acute [Recovered/Resolved]
